FAERS Safety Report 5989113-0 (Version None)
Quarter: 2008Q4

REPORT INFORMATION
  Report Type: 
  Country: None (occurrence: None)
  Receive Date: 20081210
  Receipt Date: 20081127
  Transmission Date: 20090506
  Serious: Yes (Other)
  Sender: FDA-Public Use
  Company Number: ES-BAYER-200831736GPV

PATIENT
  Age: 85 Year
  Sex: Female

DRUGS (9)
  1. ASPIRIN [Suspect]
     Indication: CARDIAC DISORDER
     Route: 048
     Dates: start: 19971201
  2. FERO-GRADUMET / FERROUS SULFATE [Suspect]
     Indication: IRON DEFICIENCY ANAEMIA
     Route: 048
     Dates: start: 20071201
  3. ACETYLCYSTEINE [Suspect]
     Indication: COUGH
     Route: 048
     Dates: start: 19980216
  4. NITRADISC/ NITROGLYCERINE [Suspect]
     Indication: CARDIAC DISORDER
     Route: 065
     Dates: start: 19971201
  5. SEGURIL/ FUROSEMIDE [Suspect]
     Indication: CARDIAC DISORDER
     Route: 048
     Dates: start: 19971201
  6. SEKISAN/CLOPERASTINE PHENDIZOATE [Suspect]
     Indication: COUGH
     Route: 048
     Dates: start: 19980216
  7. ZOLPIDEM TARTRATE [Suspect]
     Indication: CARDIAC DISORDER
     Route: 048
     Dates: start: 19971201
  8. ZANTAC [Suspect]
     Indication: CARDIAC DISORDER
     Route: 048
     Dates: start: 19971201
  9. ALLOPURINOL [Suspect]
     Indication: DRUG USE FOR UNKNOWN INDICATION
     Route: 048
     Dates: start: 19971201

REACTIONS (1)
  - STEVENS-JOHNSON SYNDROME [None]
